FAERS Safety Report 13705526 (Version 1)
Quarter: 2017Q2

REPORT INFORMATION
  Report Type: Report from Study
  Country: None (occurrence: US)
  Receive Date: 20170630
  Receipt Date: 20170630
  Transmission Date: 20170830
  Serious: No
  Sender: FDA-Public Use
  Company Number: US-IPSEN BIOPHARMACEUTICALS, INC.-2014-2277

PATIENT
  Sex: Male
  Weight: 90.7 kg

DRUGS (12)
  1. SOMATULINE DEPOT [Suspect]
     Active Substance: LANREOTIDE ACETATE
     Dosage: 60MG
     Route: 058
     Dates: start: 20130509, end: 201308
  2. GRALISE [Concomitant]
     Active Substance: GABAPENTIN
     Indication: PRODUCT USED FOR UNKNOWN INDICATION
     Route: 065
  3. SOMATULINE DEPOT [Suspect]
     Active Substance: LANREOTIDE ACETATE
     Indication: ACROMEGALY
     Dosage: 90MG
     Route: 058
     Dates: start: 201308, end: 201311
  4. SOMATULINE DEPOT [Suspect]
     Active Substance: LANREOTIDE ACETATE
     Dosage: 60MG
     Route: 058
     Dates: start: 201311, end: 20140729
  5. DIAZEPAM. [Concomitant]
     Active Substance: DIAZEPAM
     Indication: VERTIGO
     Dosage: NOT REPORTED
     Route: 065
  6. TESTOSTERONE. [Concomitant]
     Active Substance: TESTOSTERONE
     Indication: HYPOGONADISM MALE
     Dosage: 150MG (0.7 INJECTIONS)
     Route: 030
  7. SOMATULINE DEPOT [Suspect]
     Active Substance: LANREOTIDE ACETATE
     Dosage: 60MG
     Route: 058
     Dates: start: 20140729
  8. AMBIEN [Concomitant]
     Active Substance: ZOLPIDEM TARTRATE
     Indication: INSOMNIA
     Route: 048
  9. TRAZODONE [Concomitant]
     Active Substance: TRAZODONE HYDROCHLORIDE
     Indication: PRODUCT USED FOR UNKNOWN INDICATION
     Route: 065
  10. LYRICA [Concomitant]
     Active Substance: PREGABALIN
     Indication: PRODUCT USED FOR UNKNOWN INDICATION
     Route: 065
  11. LIQUID VITAMINS [Concomitant]
     Indication: PRODUCT USED FOR UNKNOWN INDICATION
     Dosage: NOT REPORTED
     Route: 065
  12. PROTEIN DRINKS [Concomitant]
     Indication: PRODUCT USED FOR UNKNOWN INDICATION
     Dosage: NOT REPORTED
     Route: 065

REACTIONS (9)
  - Blood glucose decreased [None]
  - Fatigue [Unknown]
  - Pallor [Unknown]
  - Abdominal discomfort [None]
  - Muscular weakness [Unknown]
  - Blood glucose increased [Unknown]
  - Headache [Unknown]
  - Inappropriate schedule of drug administration [Unknown]
  - Malaise [Unknown]

NARRATIVE: CASE EVENT DATE: 2013
